FAERS Safety Report 5147924-8 (Version None)
Quarter: 2006Q4

REPORT INFORMATION
  Report Type: 
  Country: None (occurrence: None)
  Receive Date: 20061110
  Receipt Date: 20061103
  Transmission Date: 20070319
  Serious: Yes (Other)
  Sender: FDA-Public Use
  Company Number: US-BRISTOL-MYERS SQUIBB COMPANY-13566617

PATIENT
  Age: 63 Year
  Sex: Female
  Weight: 57 kg

DRUGS (8)
  1. ORENCIA [Suspect]
     Indication: RHEUMATOID ARTHRITIS
     Route: 042
  2. COREG [Concomitant]
  3. DIOVAN [Concomitant]
  4. VIACTIV [Concomitant]
  5. VITAMIN D [Concomitant]
  6. AMBIEN [Concomitant]
  7. ZOCOR [Concomitant]
  8. VITAMINS D + K + CALCIUM [Concomitant]

REACTIONS (2)
  - HAEMOGLOBIN DECREASED [None]
  - WHITE BLOOD CELL COUNT DECREASED [None]
